FAERS Safety Report 8213000-0 (Version None)
Quarter: 2012Q1

REPORT INFORMATION
  Report Type: 
  Country: None (occurrence: None)
  Receive Date: 20120315
  Receipt Date: 20120313
  Transmission Date: 20120608
  Serious: No
  Sender: FDA-Public Use
  Company Number: US-B.I. PHARMACEUTICALS,INC./RIDGEFIELD-2012-BP-04836BP

PATIENT
  Sex: Male

DRUGS (8)
  1. CALCIUM [Concomitant]
     Indication: SUPPLEMENTATION THERAPY
     Dosage: 1600 MG
     Route: 048
  2. ASCORBIC ACID [Concomitant]
     Indication: SUPPLEMENTATION THERAPY
     Route: 048
  3. FISH OIL [Concomitant]
     Indication: DRUG THERAPY
     Route: 048
  4. ASPIRIN [Concomitant]
     Indication: DRUG THERAPY
     Dosage: 81 MG
     Route: 048
  5. MULTI-VITAMIN [Concomitant]
     Indication: SUPPLEMENTATION THERAPY
     Route: 048
  6. TRADJENTA [Suspect]
     Indication: TYPE 2 DIABETES MELLITUS
     Dosage: 5 MG
     Route: 048
  7. MOVE FREE [Concomitant]
     Indication: OSTEOPOROSIS
     Route: 048
  8. LISINOPRIL [Concomitant]
     Indication: HYPERTENSION
     Dosage: 10 MG
     Route: 048

REACTIONS (1)
  - CHROMATURIA [None]
